FAERS Safety Report 5548769-7 (Version None)
Quarter: 2007Q4

REPORT INFORMATION
  Report Type: 
  Country: None (occurrence: None)
  Receive Date: 20071206
  Receipt Date: 20071122
  Transmission Date: 20080405
  Serious: Yes (Hospitalization)
  Sender: FDA-Public Use
  Company Number: 2007S1012148

PATIENT
  Age: 89 Year
  Sex: Male

DRUGS (11)
  1. FLUOXETINE [Suspect]
     Indication: DEPRESSION
     Dosage: 20 MG; ORAL
     Route: 048
     Dates: end: 20070605
  2. FUROSEMIDE [Suspect]
     Indication: CARDIAC FAILURE
     Dosage: 40 MG; ORAL
     Route: 048
     Dates: end: 20070602
  3. FUROSEMIDE [Suspect]
     Indication: HYPERTENSION
     Dosage: 40 MG; ORAL
     Route: 048
     Dates: end: 20070602
  4. DIGOXIN [Concomitant]
  5. LACTULOSE [Concomitant]
  6. LANSOPRAZOLE [Concomitant]
  7. PERINDOPRIL [Concomitant]
  8. SIMVASTATIN [Concomitant]
  9. TIOTROPIUM BROMIDE [Concomitant]
  10. SENNA [Concomitant]
  11. SERETIDE [Concomitant]

REACTIONS (6)
  - ASTHENIA [None]
  - CONFUSIONAL STATE [None]
  - DYSPHAGIA [None]
  - HYPONATRAEMIA [None]
  - LETHARGY [None]
  - VOMITING [None]
